FAERS Safety Report 5657457-8 (Version None)
Quarter: 2008Q1

REPORT INFORMATION
  Report Type: 
  Country: None (occurrence: None)
  Receive Date: 20080310
  Receipt Date: 20080227
  Transmission Date: 20080703
  Serious: Yes (Other)
  Sender: FDA-Public Use
  Company Number: DE-ELI_LILLY_AND_COMPANY-DE200708005960

PATIENT
  Age: 12 Year
  Sex: Male

DRUGS (5)
  1. STRATTERA [Suspect]
     Indication: ATTENTION DEFICIT/HYPERACTIVITY DISORDER
     Dosage: UNK, UNKNOWN
     Route: 065
     Dates: start: 20070801
  2. STRATTERA [Suspect]
     Dosage: 60 MG, UNKNOWN
     Route: 065
  3. STRATTERA [Suspect]
     Dosage: 25 MG, UNKNOWN
     Route: 065
     Dates: start: 20071002
  4. STRATTERA [Suspect]
     Dosage: 60 MG, UNKNOWN
     Route: 065
  5. MEDIKINET [Concomitant]
     Indication: ATTENTION DEFICIT/HYPERACTIVITY DISORDER
     Dosage: 10 MG, UNKNOWN
     Route: 065

REACTIONS (6)
  - ANXIETY [None]
  - DEPRESSION [None]
  - DRUG INEFFECTIVE [None]
  - MOOD ALTERED [None]
  - SLEEP DISORDER [None]
  - TEARFULNESS [None]
